FAERS Safety Report 4479562-4 (Version None)
Quarter: 2004Q4

REPORT INFORMATION
  Report Type: 
  Country: None (occurrence: None)
  Receive Date: 20041015
  Receipt Date: 20041009
  Transmission Date: 20050328
  Serious: Yes (Life-Threatening, Hospitalization)
  Sender: FDA-Public Use
  Company Number: 2004-10-0584

PATIENT
  Age: 35 Year
  Sex: Female

DRUGS (2)
  1. PEG-INTRON [Suspect]
     Indication: HEPATITIS C
     Dosage: ^80 MG^ SUBCUTANEOUS
     Route: 058
     Dates: start: 20040901, end: 20040901
  2. RIBAVIRIN [Suspect]
     Indication: HEPATITIS C
     Dosage: ORAL
     Route: 048
     Dates: start: 20040901, end: 20040901

REACTIONS (1)
  - CEREBROVASCULAR ACCIDENT [None]
